FAERS Safety Report 10206572 (Version 15)
Quarter: 2016Q2

REPORT INFORMATION
  Report Type: Spontaneous
  Country: US (occurrence: US)
  Receive Date: 20140530
  Receipt Date: 20160526
  Transmission Date: 20160815
  Serious: Yes (Death, Hospitalization, Other)
  Sender: FDA-Public Use
  Company Number: US-GLAXOSMITHKLINE-A1041565A

PATIENT
  Age: 41 Year
  Sex: Female

DRUGS (18)
  1. FLOLAN [Suspect]
     Active Substance: EPOPROSTENOL SODIUM
     Dosage: 32 NG/KG/MIN, CO
  2. COUMADIN [Concomitant]
     Active Substance: WARFARIN SODIUM
  3. TRACLEER [Concomitant]
     Active Substance: BOSENTAN
  4. FLOLAN [Suspect]
     Active Substance: EPOPROSTENOL SODIUM
     Indication: PULMONARY ARTERIAL HYPERTENSION
     Dosage: 18 NG/KG/MIN CONTINUOUS CONCENTRATION: 45,000 NG/MLVIAL STRENGTH: 1.5 MG21 NG/KG/MIN, CONC[...]
     Route: 042
     Dates: start: 20130911
  5. FLOLAN [Suspect]
     Active Substance: EPOPROSTENOL SODIUM
     Dosage: 22 NG/KG/MIN, CO
  6. FLOLAN [Suspect]
     Active Substance: EPOPROSTENOL SODIUM
     Dosage: 27 NG/KG/MIN CONTINUOUS
  7. FLOLAN [Suspect]
     Active Substance: EPOPROSTENOL SODIUM
     Dosage: 32 NG/KG/MIN, CO
  8. FLOLAN [Suspect]
     Active Substance: EPOPROSTENOL SODIUM
     Dosage: 32 NG/KG/MIN, CO
  9. REVATIO [Concomitant]
     Active Substance: SILDENAFIL CITRATE
  10. FLOLAN [Suspect]
     Active Substance: EPOPROSTENOL SODIUM
     Dosage: UNK
     Dates: start: 20130911
  11. FLOLAN [Suspect]
     Active Substance: EPOPROSTENOL SODIUM
     Dosage: 32 NG/KG/MIN, CO
     Dates: start: 20130911
  12. FLOLAN [Suspect]
     Active Substance: EPOPROSTENOL SODIUM
     Dosage: 38 NG/KG/MIN, CO
     Dates: start: 20130911
  13. FLOLAN [Suspect]
     Active Substance: EPOPROSTENOL SODIUM
     Dosage: UNK
     Dates: start: 20130911
  14. FLOLAN [Suspect]
     Active Substance: EPOPROSTENOL SODIUM
     Dosage: UNK
     Dates: start: 20130911
  15. ADEMPAS [Suspect]
     Active Substance: RIOCIGUAT
     Indication: PRODUCT USED FOR UNKNOWN INDICATION
  16. FLOLAN [Suspect]
     Active Substance: EPOPROSTENOL SODIUM
     Dosage: UNK
     Dates: start: 20130911
  17. FLOLAN [Suspect]
     Active Substance: EPOPROSTENOL SODIUM
     Dosage: UNK
     Dates: start: 20130911
  18. OPSUMIT [Concomitant]
     Active Substance: MACITENTAN

REACTIONS (33)
  - Rash [Unknown]
  - Infusion site erythema [Unknown]
  - Infusion site pruritus [Unknown]
  - Injury [Unknown]
  - Syncope [Unknown]
  - Chronic obstructive pulmonary disease [Unknown]
  - Pulmonary arterial hypertension [Unknown]
  - Cough [Unknown]
  - Device breakage [Unknown]
  - Death [Fatal]
  - Influenza [Unknown]
  - Ill-defined disorder [Unknown]
  - Pain in jaw [Recovered/Resolved]
  - Fall [Unknown]
  - Malaise [Unknown]
  - Central venous catheterisation [Unknown]
  - Epistaxis [Unknown]
  - Loss of consciousness [Unknown]
  - Flushing [Recovered/Resolved]
  - Nausea [Unknown]
  - Tooth infection [Unknown]
  - Platelet count decreased [Unknown]
  - Blood potassium decreased [Unknown]
  - Dyspnoea [Unknown]
  - Somnambulism [Unknown]
  - Limb injury [Unknown]
  - Gingival blister [Not Recovered/Not Resolved]
  - Application site erythema [Not Recovered/Not Resolved]
  - Pulmonary hypertension [Unknown]
  - Pain in extremity [Unknown]
  - Diarrhoea [Not Recovered/Not Resolved]
  - Fatigue [Unknown]
  - Complication associated with device [Unknown]

NARRATIVE: CASE EVENT DATE: 201412
